FAERS Safety Report 4307855-X (Version None)
Quarter: 2004Q1

REPORT INFORMATION
  Report Type: 
  Country: None (occurrence: None)
  Receive Date: 20040226
  Receipt Date: 20030522
  Transmission Date: 20041129
  Serious: Yes (Hospitalization, Other)
  Sender: FDA-Public Use
  Company Number: 2003161017US

PATIENT
  Age: 72 Year
  Sex: Female

DRUGS (4)
  1. CELEBREX [Suspect]
     Indication: ARTHRITIS
     Dosage: ORAL
     Route: 048
     Dates: start: 20020101
  2. LORTAB [Concomitant]
  3. DIAZEPAM [Concomitant]
  4. MULTIVITAMIN [Concomitant]

REACTIONS (2)
  - BODY HEIGHT DECREASED [None]
  - HYPERSENSITIVITY [None]
